FAERS Safety Report 4343662-X (Version None)
Quarter: 2004Q2

REPORT INFORMATION
  Report Type: 
  Country: None (occurrence: None)
  Receive Date: 20040419
  Receipt Date: 20040405
  Transmission Date: 20050107
  Serious: Yes (Death, Hospitalization)
  Sender: FDA-Public Use
  Company Number: MEDI-0001624

PATIENT
  Age: 1 Month
  Sex: Female
  Weight: 2.643 kg

DRUGS (2)
  1. SYNAGIS [Suspect]
     Indication: ANTIVIRAL PROPHYLAXIS
     Dosage: 1 IN 30 D, INTRAMUSCULAR; 40 MG, 1 IN 30 D, INTRAMUSCULAR
     Route: 030
     Dates: start: 20040225, end: 20040225
  2. SYNAGIS [Suspect]
     Indication: ANTIVIRAL PROPHYLAXIS
     Dosage: 1 IN 30 D, INTRAMUSCULAR; 40 MG, 1 IN 30 D, INTRAMUSCULAR
     Route: 030
     Dates: start: 20040324, end: 20040324

REACTIONS (1)
  - COMA [None]
